FAERS Safety Report 4874846-X (Version None)
Quarter: 2006Q1

REPORT INFORMATION
  Report Type: 
  Country: None (occurrence: None)
  Receive Date: 20060104
  Receipt Date: 20051222
  Transmission Date: 20060701
  Serious: Yes (Other)
  Sender: FDA-Public Use
  Company Number: 2005173151

PATIENT
  Age: 51 Year
  Sex: Female

DRUGS (4)
  1. DOXEPIN HCL [Suspect]
     Dosage: ORAL
     Route: 048
     Dates: start: 20020101, end: 20050101
  2. CLIMAGEST (ESTRADIOL VALERATE, NORETHISTERONE) [Concomitant]
  3. LANSOPRAZOLE [Concomitant]
  4. DIAZEPAM [Concomitant]

REACTIONS (4)
  - ABDOMINAL PAIN UPPER [None]
  - SENSATION OF PRESSURE [None]
  - SLEEP DISORDER [None]
  - WEIGHT DECREASED [None]
